FAERS Safety Report 11645979 (Version 2)
Quarter: 2016Q2

REPORT INFORMATION
  Report Type: Spontaneous
  Country: US (occurrence: US)
  Receive Date: 20151020
  Receipt Date: 20160429
  Transmission Date: 20160815
  Serious: No
  Sender: FDA-Public Use
  Company Number: US-ROCHE-1611351

PATIENT
  Sex: Male
  Weight: 93.52 kg

DRUGS (1)
  1. ESBRIET [Suspect]
     Active Substance: PIRFENIDONE
     Indication: IDIOPATHIC PULMONARY FIBROSIS
     Dosage: 3 CAPSULES THRICE DAILY
     Route: 048
     Dates: start: 20150224

REACTIONS (7)
  - Peripheral swelling [Unknown]
  - Sinusitis [Unknown]
  - Rhinorrhoea [Unknown]
  - Sunburn [Recovered/Resolved]
  - Body temperature increased [Unknown]
  - Nausea [Not Recovered/Not Resolved]
  - Oedema [Unknown]
